FAERS Safety Report 6463579-4 (Version None)
Quarter: 2009Q4

REPORT INFORMATION
  Report Type: 
  Country: None (occurrence: None)
  Receive Date: 20091201
  Receipt Date: 20091120
  Transmission Date: 20100525
  Serious: Yes (Other)
  Sender: FDA-Public Use
  Company Number: CA-WYE-G04654709

PATIENT
  Sex: Male
  Weight: 70 kg

DRUGS (1)
  1. TORISEL [Suspect]
     Indication: METASTATIC RENAL CELL CARCINOMA
     Route: 042
     Dates: start: 20090226, end: 20090810

REACTIONS (3)
  - DRUG INEFFECTIVE [None]
  - LUNG NEOPLASM [None]
  - NEOPLASM PROGRESSION [None]
